FAERS Safety Report 22212266 (Version 1)
Quarter: 2023Q2

REPORT INFORMATION
  Report Type: Other
  Country: None (occurrence: US)
  Receive Date: 20230414
  Receipt Date: 20230414
  Transmission Date: 20230721
  Serious: Yes (Other)
  Sender: FDA-Public Use
  Company Number: US-B.Braun Medical Inc.-2140347

PATIENT
  Sex: Male

DRUGS (3)
  1. EPINEPHRINE\LIDOCAINE HYDROCHLORIDE [Suspect]
     Active Substance: EPINEPHRINE\LIDOCAINE HYDROCHLORIDE
     Indication: Anaesthesia
  2. ASPIRIN [Concomitant]
     Active Substance: ASPIRIN
  3. EPINEPHRINE [Suspect]
     Active Substance: EPINEPHRINE

REACTIONS (1)
  - Post procedural haemorrhage [Recovered/Resolved]
